FAERS Safety Report 9390348 (Version 2)
Quarter: 2013Q3

REPORT INFORMATION
  Report Type: Report from Study
  Country: CA (occurrence: CA)
  Receive Date: 20130709
  Receipt Date: 20130711
  Transmission Date: 20140515
  Serious: Yes (Death)
  Sender: FDA-Public Use
  Company Number: CA-ROCHE-1207704

PATIENT
  Age: 54 Year
  Sex: Female

DRUGS (9)
  1. ZELBORAF [Suspect]
     Indication: OVARIAN CANCER
     Route: 048
     Dates: start: 201303
  2. ZELBORAF [Suspect]
     Indication: OFF LABEL USE
     Route: 048
     Dates: start: 20130318
  3. TEVA-VENLAFAXINE [Concomitant]
  4. LORAZEPAM [Concomitant]
  5. ZOPICLONE [Concomitant]
  6. HYDROMORPHONE [Concomitant]
  7. RIZATRIPTAN [Concomitant]
  8. DOCUSATE SODIUM [Concomitant]
  9. SENOKOT [Concomitant]

REACTIONS (3)
  - Disease progression [Fatal]
  - Nausea [Unknown]
  - Malaise [Unknown]
